FAERS Safety Report 21310566 (Version 1)
Quarter: 2022Q3

REPORT INFORMATION
  Report Type: Report from Study
  Country: CA (occurrence: CA)
  Receive Date: 20220909
  Receipt Date: 20220909
  Transmission Date: 20221026
  Serious: Yes (Other)
  Sender: FDA-Public Use
  Company Number: CA-BRISTOL-MYERS SQUIBB COMPANY-2022-102546

PATIENT
  Age: 69 Year
  Sex: Female
  Weight: 90.70 kg

DRUGS (12)
  1. ORENCIA [Suspect]
     Active Substance: ABATACEPT
     Indication: Rheumatoid arthritis
     Dosage: WEEKLY
     Route: 058
     Dates: start: 20150604
  2. INSULIN NOS [Concomitant]
     Active Substance: INSULIN NOS
  3. GLYBURIDE\METFORMIN [Concomitant]
     Active Substance: GLYBURIDE\METFORMIN
  4. ASPIRIN [Concomitant]
     Active Substance: ASPIRIN
  5. IRBESARTAN [Concomitant]
     Active Substance: IRBESARTAN
  6. CALCIUM CARBONATE [Concomitant]
     Active Substance: CALCIUM CARBONATE
  7. CRESTOR [Concomitant]
     Active Substance: ROSUVASTATIN CALCIUM
  8. LIPIDIL [Concomitant]
     Active Substance: FENOFIBRATE
  9. CITALOPRAM [Concomitant]
     Active Substance: CITALOPRAM HYDROBROMIDE
  10. DIAZEPAM [Concomitant]
     Active Substance: DIAZEPAM
  11. PIOGLITAZONE [Concomitant]
     Active Substance: PIOGLITAZONE
  12. PANTOPRAZOLE SODIUM [Concomitant]
     Active Substance: PANTOPRAZOLE SODIUM

REACTIONS (2)
  - Rheumatoid arthritis [Unknown]
  - Parkinson^s disease [Unknown]
